FAERS Safety Report 10443256 (Version 3)
Quarter: 2014Q4

REPORT INFORMATION
  Report Type: Spontaneous
  Country: IT (occurrence: IT)
  Receive Date: 20140910
  Receipt Date: 20141109
  Transmission Date: 20150528
  Serious: Yes (Other)
  Sender: FDA-Public Use
  Company Number: IT-MERCK-1409ITA001589

PATIENT
  Age: 62 Year
  Sex: Male

DRUGS (3)
  1. REBETOL [Suspect]
     Active Substance: RIBAVIRIN
     Indication: HEPATIC CIRRHOSIS
     Dosage: 1000MG DAILY DOSE, QD
     Route: 048
     Dates: start: 20130925, end: 20131216
  2. VICTRELIS [Suspect]
     Active Substance: BOCEPREVIR
     Indication: HEPATIC CIRRHOSIS
     Dosage: 2400MG DAILY DOSE, QD
     Route: 048
     Dates: start: 20131016, end: 20131216
  3. PEGINTRON [Suspect]
     Active Substance: PEGINTERFERON ALFA-2B
     Indication: HEPATIC CIRRHOSIS
     Dosage: 100 MICROGRAM, QW
     Route: 058
     Dates: start: 20130925, end: 20131216

REACTIONS (1)
  - Renal colic [Recovering/Resolving]

NARRATIVE: CASE EVENT DATE: 20131216
